FAERS Safety Report 13829783 (Version 2)
Quarter: 2017Q3

REPORT INFORMATION
  Report Type: Spontaneous
  Country: US (occurrence: US)
  Receive Date: 20170803
  Receipt Date: 20170914
  Transmission Date: 20171127
  Serious: Yes (Other)
  Sender: FDA-Public Use
  Company Number: PHEH2017US023438

PATIENT
  Age: 9 Year
  Sex: Male
  Weight: 33.6 kg

DRUGS (2)
  1. FOCALIN [Suspect]
     Active Substance: DEXMETHYLPHENIDATE HYDROCHLORIDE
     Indication: ATTENTION DEFICIT/HYPERACTIVITY DISORDER
     Dosage: 10 MG, UNK
     Route: 048
     Dates: start: 20170307, end: 20170405
  2. FOCALIN XR [Suspect]
     Active Substance: DEXMETHYLPHENIDATE HYDROCHLORIDE
     Indication: ATTENTION DEFICIT/HYPERACTIVITY DISORDER
     Dosage: 30 MG, UNK
     Route: 048
     Dates: start: 20170307, end: 20170405

REACTIONS (9)
  - Anger [Recovering/Resolving]
  - Developmental regression [Recovering/Resolving]
  - Communication disorder [Recovering/Resolving]
  - Distractibility [Recovering/Resolving]
  - Inappropriate affect [Recovering/Resolving]
  - Autism spectrum disorder [Recovering/Resolving]
  - Abnormal behaviour [Recovering/Resolving]
  - Disturbance in attention [Recovering/Resolving]
  - Restlessness [Recovering/Resolving]

NARRATIVE: CASE EVENT DATE: 20170315
